FAERS Safety Report 17562275 (Version 1)
Quarter: 2020Q1

REPORT INFORMATION
  Report Type: Spontaneous
  Country: US (occurrence: US)
  Receive Date: 20200319
  Receipt Date: 20200319
  Transmission Date: 20200409
  Serious: Yes (Death)
  Sender: FDA-Public Use
  Company Number: US-AMNEAL PHARMACEUTICALS-2020-AMRX-00829

PATIENT
  Sex: Female
  Weight: 11 kg

DRUGS (1)
  1. VIGABATRIN. [Suspect]
     Active Substance: VIGABATRIN
     Indication: INFANTILE SPASMS
     Dosage: TAKE 10 ML (500 MG) IN THE MORNING AND 15 ML (750 MG) IN THE EVENING
     Route: 048

REACTIONS (1)
  - Adverse event [Fatal]
